FAERS Safety Report 8861973 (Version 1)
Quarter: 2012Q4

REPORT INFORMATION
  Report Type: Report from Study
  Country: AU (occurrence: AU)
  Receive Date: 20121025
  Receipt Date: 20121025
  Transmission Date: 20130627
  Serious: Yes (Hospitalization)
  Sender: FDA-Public Use
  Company Number: AU-JNJFOC-20121010701

PATIENT
  Sex: Female

DRUGS (1)
  1. REMICADE [Suspect]
     Indication: CROHN^S DISEASE
     Dosage: infusion period: 2.00hr  

Total number of doses administered: 12
     Route: 042
     Dates: start: 20110401

REACTIONS (1)
  - Skin cancer [Recovering/Resolving]
